FAERS Safety Report 8511579-2 (Version None)
Quarter: 2012Q3

REPORT INFORMATION
  Report Type: 
  Country: None (occurrence: None)
  Receive Date: 20120716
  Receipt Date: 20120516
  Transmission Date: 20120928
  Serious: Yes (Other)
  Sender: FDA-Public Use
  Company Number: US-JNJCP-30000107411

PATIENT
  Sex: Male

DRUGS (1)
  1. AVEENO BABY CALMING COMFORT LOTION USA ABCCLTUS [Suspect]
     Route: 061

REACTIONS (1)
  - STAPHYLOCOCCAL BACTERAEMIA [None]
